FAERS Safety Report 6861347-2 (Version None)
Quarter: 2010Q3

REPORT INFORMATION
  Report Type: 
  Country: None (occurrence: None)
  Receive Date: 20100715
  Receipt Date: 20100630
  Transmission Date: 20110219
  Serious: Yes (Death)
  Sender: FDA-Public Use
  Company Number: IL-DEXPHARM-20100958

PATIENT
  Age: 70 Year
  Sex: Female

DRUGS (24)
  1. OMEPRAZOLE [Suspect]
  2. ASPIRIN [Suspect]
     Dosage: ACTIVE SUBCUTANCES: ASPIRIN
  3. METFORMIN HCL [Suspect]
     Dosage: ACTIVE SUBSTANCES
  4. AMIKACIN [Concomitant]
  5. AMITRIPTYLINE HYDROCHLORIDE [Concomitant]
  6. AMPICILLIN SODIUM [Concomitant]
  7. CEFTRIAXONE [Concomitant]
  8. CIPROFLOXACIN [Concomitant]
  9. CITALOPRAM [Concomitant]
  10. DEXTROSE [Concomitant]
  11. ENALAPRIL [Concomitant]
  12. FUROSEMIDE [Concomitant]
  13. GLYBURIDE [Concomitant]
  14. HYDROCORTISONE [Concomitant]
  15. IMMUNE GLOBULIN NOS [Concomitant]
  16. LATANOPROST [Concomitant]
  17. LEVOFLOXACIN [Concomitant]
  18. MAGNESIUM SULFATE [Concomitant]
  19. PIPERACILLIN [Concomitant]
  20. SIMVASTATIN [Concomitant]
  21. TAZOBACTAM [Concomitant]
  22. THEOPHYLLINE [Concomitant]
  23. VANCOMYCIN [Concomitant]
  24. VERAPAMIL [Concomitant]

REACTIONS (15)
  - ACUTE RESPIRATORY DISTRESS SYNDROME [None]
  - BODY TEMPERATURE INCREASED [None]
  - ENTEROBACTER TEST POSITIVE [None]
  - ENTEROCOCCUS TEST POSITIVE [None]
  - HAEMODYNAMIC INSTABILITY [None]
  - HAEMORRHAGE INTRACRANIAL [None]
  - HYPOGLYCAEMIA [None]
  - HYPOMAGNESAEMIA [None]
  - KLEBSIELLA TEST POSITIVE [None]
  - LEUKOPENIA [None]
  - PNEUMONIA [None]
  - PROTEUS TEST POSITIVE [None]
  - PSEUDOMONAS TEST POSITIVE [None]
  - THROMBOCYTOPENIA [None]
  - TOXIC EPIDERMAL NECROLYSIS [None]
